FAERS Safety Report 8089306-5 (Version None)
Quarter: 2012Q1

REPORT INFORMATION
  Report Type: 
  Country: None (occurrence: None)
  Receive Date: 20120128
  Receipt Date: 20110831
  Transmission Date: 20120608
  Serious: No
  Sender: FDA-Public Use
  Company Number: US-ABBOTT-11P-163-0718563-00

PATIENT
  Sex: Male

DRUGS (28)
  1. FLUOCINOLONE ACETONIDE [Concomitant]
     Indication: PSORIASIS
     Dates: start: 20060101
  2. NAPHAZOLINE W/PHENIRAMINE [Concomitant]
     Indication: EYE IRRITATION
  3. ZYRTEC [Concomitant]
     Indication: HYPERSENSITIVITY
  4. CYANOCOBALAMIN [Concomitant]
     Indication: MINERAL SUPPLEMENTATION
  5. VITAMIN E [Concomitant]
     Indication: VITAMIN SUPPLEMENTATION
     Dates: start: 20080101
  6. KETOCONAZOLE [Concomitant]
     Indication: PSORIASIS
     Dates: start: 20060101
  7. CLOBETASOL PROPIONATE [Concomitant]
     Indication: PSORIASIS
     Dates: start: 20060101
  8. VITAMIN D [Concomitant]
     Indication: VITAMIN SUPPLEMENTATION
     Dosage: DAILY
  9. RISPERDAL [Concomitant]
     Indication: PRODUCT USED FOR UNKNOWN INDICATION
  10. HUMIRA [Suspect]
     Indication: PSORIATIC ARTHROPATHY
     Route: 058
     Dates: start: 20100901
  11. HUMIRA [Suspect]
     Indication: RHEUMATOID ARTHRITIS
  12. MELATONIN [Concomitant]
     Indication: INSOMNIA
     Dates: start: 20080101
  13. HYDROCORTISONE [Concomitant]
     Indication: PSORIASIS
     Dates: start: 20060101
  14. TRIAMCINOLONE ACETONIDE [Concomitant]
     Indication: PSORIASIS
     Dates: start: 20060101
  15. MULTI-VITAMIN [Concomitant]
     Indication: PRODUCT USED FOR UNKNOWN INDICATION
  16. METHOTREXATE [Concomitant]
     Indication: PSORIATIC ARTHROPATHY
     Dates: start: 20101001
  17. FOLIC ACID [Concomitant]
     Indication: PRODUCT USED FOR UNKNOWN INDICATION
     Dates: start: 20080101
  18. RISPERIDONE [Concomitant]
     Indication: PRODUCT USED FOR UNKNOWN INDICATION
     Dosage: 1 IN AM AND 1 AT BEDTIME
     Dates: start: 20080101
  19. NAPHAZOLINE W/PHENIRAMINE [Concomitant]
     Indication: EYE ALLERGY
  20. TOPICAL CREAMS [Concomitant]
     Indication: PSORIASIS
  21. CALCIUM [Concomitant]
     Indication: ARTHRITIS
     Dates: start: 20080101
  22. ASPIRIN [Concomitant]
     Indication: DIARRHOEA
     Dates: start: 20080101
  23. METHOTREXATE [Concomitant]
     Indication: INFLAMMATION
  24. CALCIUM [Concomitant]
     Indication: MINERAL SUPPLEMENTATION
  25. MOTRIN [Concomitant]
     Indication: ARTHRALGIA
     Dates: start: 19800101
  26. CYANOCOBALAMIN [Concomitant]
     Indication: VITAMIN SUPPLEMENTATION
     Dates: start: 20080101
  27. IRON [Concomitant]
     Indication: MINERAL SUPPLEMENTATION
     Dosage: DAILY
  28. FIBRICON [Concomitant]
     Indication: SUPPLEMENTATION THERAPY

REACTIONS (13)
  - WEIGHT INCREASED [None]
  - CHEST PAIN [None]
  - DIARRHOEA [None]
  - HYPERHIDROSIS [None]
  - FEELING ABNORMAL [None]
  - MOBILITY DECREASED [None]
  - GAZE PALSY [None]
  - EYE IRRITATION [None]
  - LETHARGY [None]
  - PYREXIA [None]
  - FEELING HOT [None]
  - SENSATION OF HEAVINESS [None]
  - ARTHRALGIA [None]
